FAERS Safety Report 9736742 (Version 1)
Quarter: 2013Q4

REPORT INFORMATION
  Report Type: Spontaneous
  Country: FR (occurrence: FR)
  Receive Date: 20131206
  Receipt Date: 20131206
  Transmission Date: 20140711
  Serious: Yes (Other)
  Sender: FDA-Public Use
  Company Number: FR-009507513-1312FRA001293

PATIENT
  Age: 75 Year
  Sex: Female

DRUGS (11)
  1. CANCIDAS [Suspect]
     Indication: BRONCHOPULMONARY ASPERGILLOSIS
     Dosage: 50 MG, QD
     Route: 042
     Dates: start: 20131106
  2. ZELITREX [Suspect]
     Indication: BRONCHOPULMONARY ASPERGILLOSIS
     Dosage: 2 DF, TID
     Route: 048
     Dates: start: 20131101, end: 20131107
  3. VFEND [Suspect]
     Indication: ASPERGILLUS INFECTION
     Dosage: 450 MG, QD
     Route: 048
     Dates: start: 20131106
  4. CARDENSIEL [Concomitant]
     Dosage: UNK
  5. HYPERIUM [Concomitant]
     Dosage: UNK
  6. AMLOR [Concomitant]
     Dosage: UNK
  7. ATARAX (ALPRAZOLAM) [Concomitant]
     Dosage: UNK
  8. INEXIUM [Concomitant]
     Dosage: UNK
  9. CORTANCYL [Concomitant]
     Dosage: UNK
  10. OXYCONTIN [Concomitant]
     Dosage: UNK
  11. TRANSIPEG [Concomitant]
     Dosage: UNK

REACTIONS (1)
  - Renal failure [Not Recovered/Not Resolved]
